FAERS Safety Report 19414477 (Version 1)
Quarter: 2021Q2

REPORT INFORMATION
  Report Type: Spontaneous
  Country: US (occurrence: US)
  Receive Date: 20210615
  Receipt Date: 20210615
  Transmission Date: 20210717
  Serious: No
  Sender: FDA-Public Use
  Company Number: US-009507513-2105USA006895

PATIENT
  Age: 64 Year
  Sex: Female

DRUGS (1)
  1. STEGLATRO [Suspect]
     Active Substance: ERTUGLIFLOZIN PIDOLATE
     Dosage: 5MG ONCE A DAY
     Route: 048
     Dates: start: 202103

REACTIONS (6)
  - Back pain [Unknown]
  - Fatigue [Unknown]
  - Urinary incontinence [Unknown]
  - Headache [Unknown]
  - Somnolence [Unknown]
  - Abdominal pain [Unknown]

NARRATIVE: CASE EVENT DATE: 2021
